FAERS Safety Report 14641130 (Version 1)
Quarter: 2018Q1

REPORT INFORMATION
  Report Type: Report from Study
  Country: None (occurrence: IT)
  Receive Date: 20180315
  Receipt Date: 20180315
  Transmission Date: 20180509
  Serious: Yes (Hospitalization, Other)
  Sender: FDA-Public Use
  Company Number: IT-BIOVITRUM-2018IT0250

PATIENT
  Sex: Female
  Weight: 25 kg

DRUGS (2)
  1. ORFADIN [Suspect]
     Active Substance: NITISINONE
     Indication: TYROSINAEMIA
     Dates: start: 20161212, end: 20170714
  2. ORFADIN [Suspect]
     Active Substance: NITISINONE
     Dates: start: 20170714

REACTIONS (2)
  - Arnold-Chiari malformation [Unknown]
  - Amino acid level increased [Unknown]
